FAERS Safety Report 24065999 (Version 1)
Quarter: 2024Q3

REPORT INFORMATION
  Report Type: Spontaneous
  Country: BR (occurrence: BR)
  Receive Date: 20240709
  Receipt Date: 20240709
  Transmission Date: 20241017
  Serious: Yes (Hospitalization)
  Sender: NOVARTIS
  Company Number: BR-002147023-NVSC2024BR139826

PATIENT
  Sex: Male
  Weight: 76 kg

DRUGS (5)
  1. COSENTYX [Suspect]
     Active Substance: SECUKINUMAB
     Indication: Arthritis
     Dosage: 1 DOSAGE FORM, QMO
     Route: 065
     Dates: start: 2017
  2. EVEROLIMUS [Suspect]
     Active Substance: EVEROLIMUS
     Indication: Transplant
     Dosage: 1 DOSAGE FORM, BID
     Route: 065
  3. TACROLIMUS [Concomitant]
     Active Substance: TACROLIMUS
     Indication: Transplant
     Dosage: 1 DOSAGE FORM, QD
     Route: 065
  4. URSODIOL [Concomitant]
     Active Substance: URSODIOL
     Indication: Transplant
     Dosage: 1 DOSAGE FORM, QD
     Route: 065
  5. MYCOPHENOLATE SODIUM [Concomitant]
     Active Substance: MYCOPHENOLATE SODIUM
     Indication: Transplant
     Dosage: 3 DOSAGE FORM, QD
     Route: 065

REACTIONS (2)
  - Neoplasm [Unknown]
  - Arthritis [Unknown]
